FAERS Safety Report 6395589-X (Version None)
Quarter: 2009Q4

REPORT INFORMATION
  Report Type: 
  Country: None (occurrence: None)
  Receive Date: 20091009
  Receipt Date: 20091005
  Transmission Date: 20100525
  Serious: Yes (Hospitalization)
  Sender: FDA-Public Use
  Company Number: US-BRISTOL-MYERS SQUIBB COMPANY-14807333

PATIENT
  Age: 59 Year
  Sex: Female
  Weight: 42 kg

DRUGS (15)
  1. ERBITUX [Suspect]
     Indication: PHARYNGEAL CANCER STAGE UNSPECIFIED
     Dosage: START DATE ASSOSIATE WITH EXP REP: 11JUL09; LAST DOSE:15APR08;COURSE NO;6; NO OF COURSE-6
     Dates: start: 20080310, end: 20080415
  2. CISPLATIN [Suspect]
     Indication: PHARYNGEAL CANCER STAGE UNSPECIFIED
     Dosage: START DATE ASSOSIATE WITH EXP REP: 11JUL09; LAST DOSE:07APR08;NO OF COURSE-2
     Dates: start: 20080310, end: 20080407
  3. RADIATION THERAPY [Suspect]
     Indication: PHARYNGEAL CANCER STAGE UNSPECIFIED
     Dosage: NO OF FRACTION-35; ELAPSED DAYS-40; LAST DOSE- 25APR08;TOTAL DOSE TO DATE 70GY
     Dates: start: 20080310
  4. ATIVAN [Concomitant]
  5. CODEINE [Concomitant]
     Dosage: SYRUP
  6. FENTANYL TRANSDERMAL SYSTEM [Concomitant]
  7. HYDROMORPHONE [Concomitant]
  8. GABAPENTIN [Concomitant]
  9. LEVAQUIN [Concomitant]
  10. LIPITOR [Concomitant]
  11. OXYCET [Concomitant]
  12. PALAFER [Concomitant]
  13. PERCOCET [Concomitant]
  14. PROCHLORPERAZINE [Concomitant]
  15. TRANSDERM-V [Concomitant]

REACTIONS (1)
  - LOWER GASTROINTESTINAL HAEMORRHAGE [None]
